FAERS Safety Report 8397488-0 (Version None)
Quarter: 2012Q2

REPORT INFORMATION
  Report Type: 
  Country: None (occurrence: None)
  Receive Date: 20120531
  Receipt Date: 20120525
  Transmission Date: 20120825
  Serious: Yes (Death, Hospitalization, Other)
  Sender: FDA-Public Use
  Company Number: US-TEVA-336338USA

PATIENT

DRUGS (2)
  1. ARMODAFINIL [Suspect]
     Dosage: 150 MILLIGRAM;
     Route: 048
  2. PROVIGIL [Suspect]
     Dosage: 100 MILLIGRAM;
     Route: 048

REACTIONS (5)
  - CARDIAC ARREST [None]
  - CHEST PAIN [None]
  - MYOCARDIAL INFARCTION [None]
  - INSOMNIA [None]
  - PALPITATIONS [None]
